FAERS Safety Report 25839905 (Version 3)
Quarter: 2025Q4

REPORT INFORMATION
  Report Type: Report from Study
  Country: CA (occurrence: CA)
  Receive Date: 20250924
  Receipt Date: 20251006
  Transmission Date: 20260118
  Serious: Yes (Death, Hospitalization, Other)
  Sender: TAKEDA
  Company Number: CA-TAKEDA-2025TUS081960

PATIENT
  Age: 70 Year
  Sex: Male

DRUGS (3)
  1. FRUQUINTINIB [Suspect]
     Active Substance: FRUQUINTINIB
     Indication: Colorectal cancer metastatic
     Dosage: 5 MILLIGRAM
  2. INSULIN NOS [Concomitant]
     Active Substance: INSULIN NOS
     Dosage: UNK
  3. METFORMIN [Concomitant]
     Active Substance: METFORMIN HYDROCHLORIDE
     Dosage: UNK

REACTIONS (6)
  - Rectal cancer [Fatal]
  - Chest pain [Unknown]
  - Nervous system disorder [Unknown]
  - Tremor [Unknown]
  - Glassy eyes [Unknown]
  - Pain in extremity [Unknown]
